FAERS Safety Report 7812474-4 (Version None)
Quarter: 2011Q4

REPORT INFORMATION
  Report Type: 
  Country: None (occurrence: None)
  Receive Date: 20111013
  Receipt Date: 20111006
  Transmission Date: 20120403
  Serious: Yes (Hospitalization, Other)
  Sender: FDA-Public Use
  Company Number: US-MERCK-1109USA00515

PATIENT
  Age: 59 Year
  Sex: Female

DRUGS (3)
  1. PRILOSEC [Concomitant]
     Route: 048
     Dates: start: 19840101
  2. FOSAMAX [Suspect]
     Route: 048
     Dates: end: 20090101
  3. FOSAMAX [Suspect]
     Route: 048
     Dates: end: 20090101

REACTIONS (19)
  - ARTHRALGIA [None]
  - TOOTH DISORDER [None]
  - SPINAL COLUMN STENOSIS [None]
  - LOWER LIMB FRACTURE [None]
  - ARTHRITIS [None]
  - PARATHYROID DISORDER [None]
  - BACK PAIN [None]
  - HYPERTENSION [None]
  - HIP FRACTURE [None]
  - DEPRESSION [None]
  - BREAST CANCER [None]
  - CALCIUM DEFICIENCY [None]
  - FEMUR FRACTURE [None]
  - ANXIETY [None]
  - INFLAMMATORY BOWEL DISEASE [None]
  - ANGER [None]
  - CROHN'S DISEASE [None]
  - CONNECTIVE TISSUE DISORDER [None]
  - PANCYTOPENIA [None]
